FAERS Safety Report 21499598 (Version 1)
Quarter: 2022Q4

REPORT INFORMATION
  Report Type: Spontaneous
  Country: US (occurrence: US)
  Receive Date: 20221024
  Receipt Date: 20221024
  Transmission Date: 20230112
  Serious: No
  Sender: FDA-Public Use
  Company Number: US-ABBVIE-4169981

PATIENT
  Age: 70 Year
  Sex: Female
  Weight: 54.4 kg

DRUGS (5)
  1. HUMIRA [Suspect]
     Active Substance: ADALIMUMAB
     Indication: Rheumatoid arthritis
     Route: 058
     Dates: start: 202012, end: 202111
  2. Moderna [Concomitant]
     Indication: Immunisation
     Dosage: MODERNA -BOOSTER. LOT NUMBER 025C2112
     Route: 030
     Dates: start: 20210807, end: 20210807
  3. Moderna [Concomitant]
     Indication: Immunisation
     Dosage: MODERNA - 1ST DOSE. LOT NUMBER 023M2DA
     Route: 030
     Dates: start: 20210217, end: 20210217
  4. Moderna [Concomitant]
     Indication: Immunisation
     Dosage: MODERNA - 2ND DOSE. LOT NUMBER 045A21A
     Route: 030
     Dates: start: 20210317, end: 20210317
  5. PREDNISONE [Concomitant]
     Active Substance: PREDNISONE
     Indication: Arthritis

REACTIONS (3)
  - Therapeutic product effect decreased [Recovered/Resolved]
  - Mobility decreased [Recovered/Resolved]
  - Unevaluable event [Recovered/Resolved]

NARRATIVE: CASE EVENT DATE: 20210801
